FAERS Safety Report 17583356 (Version 3)
Quarter: 2020Q2

REPORT INFORMATION
  Report Type: Spontaneous
  Country: US (occurrence: US)
  Receive Date: 20200326
  Receipt Date: 20200402
  Transmission Date: 20200713
  Serious: No
  Sender: FDA-Public Use
  Company Number: US-ELI_LILLY_AND_COMPANY-US202003008889

PATIENT
  Age: 65 Year
  Sex: Male

DRUGS (3)
  1. HUMIRA [Suspect]
     Active Substance: ADALIMUMAB
     Indication: RHEUMATOID ARTHRITIS
     Dosage: 40 MG, BID (1 IN 14)
     Route: 058
     Dates: end: 20200217
  2. TRULICITY [Suspect]
     Active Substance: DULAGLUTIDE
     Indication: PRODUCT USED FOR UNKNOWN INDICATION
     Dosage: UNK UNK, UNKNOWN
     Route: 065
     Dates: start: 20200217
  3. HUMIRA [Suspect]
     Active Substance: ADALIMUMAB
     Indication: ANKYLOSING SPONDYLITIS
     Dosage: 40 MG, BID (1 IN 14)
     Route: 058
     Dates: start: 20200117

REACTIONS (32)
  - Joint range of motion decreased [Unknown]
  - Hyperhidrosis [Recovered/Resolved]
  - General physical condition abnormal [Unknown]
  - Fatigue [Recovered/Resolved]
  - Crepitations [Not Recovered/Not Resolved]
  - Joint swelling [Unknown]
  - Peripheral swelling [Unknown]
  - Restlessness [Recovered/Resolved]
  - Hypersensitivity [Recovered/Resolved]
  - Musculoskeletal stiffness [Not Recovered/Not Resolved]
  - Gastrointestinal sounds abnormal [Recovered/Resolved]
  - Skin discolouration [Recovered/Resolved]
  - Pain in extremity [Unknown]
  - Joint stiffness [Not Recovered/Not Resolved]
  - Discomfort [Unknown]
  - Dizziness [Recovered/Resolved]
  - Hypophagia [Unknown]
  - Dyspnoea [Recovered/Resolved]
  - Allergic oedema [Recovered/Resolved]
  - Arthralgia [Not Recovered/Not Resolved]
  - Pain [Unknown]
  - Palpitations [Recovered/Resolved]
  - Diarrhoea [Recovered/Resolved]
  - Therapeutic response shortened [Not Recovered/Not Resolved]
  - Back pain [Unknown]
  - Pallor [Unknown]
  - Dry mouth [Unknown]
  - Swelling [Unknown]
  - Headache [Unknown]
  - Neck pain [Unknown]
  - Anxiety [Unknown]
  - Therapeutic product effect decreased [Unknown]

NARRATIVE: CASE EVENT DATE: 202001
